FAERS Safety Report 12121332 (Version 1)
Quarter: 2016Q1

REPORT INFORMATION
  Report Type: Spontaneous
  Country: US (occurrence: US)
  Receive Date: 20160226
  Receipt Date: 20160226
  Transmission Date: 20160526
  Serious: No
  Sender: FDA-Public Use
  Company Number: US-ALLERGAN-1419498US

PATIENT
  Sex: Female

DRUGS (1)
  1. REFRESH OPTIVE [Suspect]
     Active Substance: CARBOXYMETHYLCELLULOSE SODIUM\GLYCERIN
     Indication: PRODUCT USED FOR UNKNOWN INDICATION
     Dosage: UNK
     Dates: start: 20140904

REACTIONS (5)
  - Vision blurred [Unknown]
  - Swollen tongue [Recovering/Resolving]
  - Lacrimation decreased [Unknown]
  - Eyelid oedema [Unknown]
  - Speech disorder [Unknown]

NARRATIVE: CASE EVENT DATE: 20140905
